FAERS Safety Report 6925901-1 (Version None)
Quarter: 2010Q3

REPORT INFORMATION
  Report Type: 
  Country: None (occurrence: None)
  Receive Date: 20100816
  Receipt Date: 20100803
  Transmission Date: 20110219
  Serious: Yes (Hospitalization)
  Sender: FDA-Public Use
  Company Number: PHHY2010CA17968

PATIENT
  Sex: Female

DRUGS (2)
  1. ZOMETA [Suspect]
     Indication: BREAST CANCER METASTATIC
     Dosage: 4 MG EVERY 4 WEEKS
     Route: 042
     Dates: start: 20070523
  2. ZOMETA [Suspect]
     Dosage: UNK

REACTIONS (12)
  - ASPARTATE AMINOTRANSFERASE INCREASED [None]
  - BLOOD CREATININE INCREASED [None]
  - BLOOD LACTATE DEHYDROGENASE INCREASED [None]
  - CARBOHYDRATE ANTIGEN 15-3 INCREASED [None]
  - FALL [None]
  - FEMUR FRACTURE [None]
  - GLOMERULAR FILTRATION RATE DECREASED [None]
  - INTRAMEDULLARY ROD INSERTION [None]
  - MOBILITY DECREASED [None]
  - SURGERY [None]
  - WALKING AID USER [None]
  - WHEELCHAIR USER [None]
